FAERS Safety Report 6358368-5 (Version None)
Quarter: 2009Q3

REPORT INFORMATION
  Report Type: 
  Country: None (occurrence: None)
  Receive Date: 20090916
  Receipt Date: 20090904
  Transmission Date: 20100115
  Serious: Yes (Hospitalization)
  Sender: FDA-Public Use
  Company Number: CH-PFIZER INC-2009264275

PATIENT
  Age: 64 Year

DRUGS (4)
  1. ATORVASTATIN CALCIUM [Suspect]
     Indication: HYPERCHOLESTEROLAEMIA
     Dosage: 40 MG, 1X/DAY
     Route: 048
     Dates: start: 20080101, end: 20090323
  2. LISINOPRIL [Concomitant]
     Dosage: 20 MG, 1X/DAY
     Dates: end: 20090409
  3. CHONDROSULF [Concomitant]
     Dosage: UNK
     Route: 048
  4. METFORMIN HYDROCHLORIDE [Concomitant]
     Dosage: 1000 MG, 2X/DAY
     Route: 048
     Dates: end: 20090403

REACTIONS (4)
  - ADVERSE EVENT [None]
  - BLOOD CREATINE PHOSPHOKINASE INCREASED [None]
  - HEPATOCELLULAR INJURY [None]
  - MYALGIA [None]
